FAERS Safety Report 8844637 (Version 1)
Quarter: 2012Q4

REPORT INFORMATION
  Report Type: 
  Country: US (occurrence: US)
  Receive Date: 20121017
  Receipt Date: 20121017
  Transmission Date: 20130627
  Serious: No
  Sender: FDA-Public Use
  Company Number: US-PFIZER INC-2012257366

PATIENT
  Sex: Female

DRUGS (6)
  1. CHILDRENS ADVIL [Suspect]
     Indication: NASOPHARYNGITIS
     Dosage: UNK
     Dates: start: 20121014
  2. CHILDRENS ADVIL [Suspect]
     Indication: INFLUENZA
  3. CHILDRENS ADVIL [Suspect]
     Indication: PYREXIA
  4. MOTRIN [Suspect]
     Indication: NASOPHARYNGITIS
     Dosage: UNK
     Dates: start: 2012, end: 2012
  5. MOTRIN [Suspect]
     Indication: INFLUENZA
  6. MOTRIN [Suspect]
     Indication: PYREXIA

REACTIONS (4)
  - Hypersensitivity [Unknown]
  - Eye swelling [Unknown]
  - Ocular hyperaemia [Unknown]
  - Nonspecific reaction [Unknown]
